FAERS Safety Report 16304905 (Version 1)
Quarter: 2019Q2

REPORT INFORMATION
  Report Type: Spontaneous
  Country: US (occurrence: US)
  Receive Date: 20190510
  Receipt Date: 20190510
  Transmission Date: 20190711
  Serious: Yes (Hospitalization)
  Sender: FDA-Public Use
  Company Number: None

PATIENT
  Age: 30 Year
  Sex: Female
  Weight: 56 kg

DRUGS (8)
  1. VALPROIC ACID. [Concomitant]
     Active Substance: VALPROIC ACID
     Dates: start: 20160501
  2. CLONAZEPAM. [Concomitant]
     Active Substance: CLONAZEPAM
     Dates: start: 20170501
  3. SODIUM PHOSPHATE- SODIUM BIPHOSPHATE- RECTAL [Concomitant]
  4. LEVOCARNITINE. [Concomitant]
     Active Substance: LEVOCARNITINE
  5. EPIDIOLEX [Suspect]
     Active Substance: CANNABIDIOL
     Indication: EPILEPSY
     Route: 048
     Dates: start: 20190118, end: 20190130
  6. PHENYTION [Concomitant]
     Active Substance: PHENYTOIN
     Dates: start: 20160518
  7. L-METHYLFOLATE [Concomitant]
     Active Substance: LEVOMEFOLIC ACID
  8. LACOSAMIDE. [Concomitant]
     Active Substance: LACOSAMIDE
     Dates: start: 20180301

REACTIONS (3)
  - Paradoxical drug reaction [None]
  - Epilepsy [None]
  - Seizure [None]

NARRATIVE: CASE EVENT DATE: 20190129
